FAERS Safety Report 8363506-9 (Version None)
Quarter: 2012Q2

REPORT INFORMATION
  Report Type: 
  Country: None (occurrence: None)
  Receive Date: 20120516
  Receipt Date: 20120510
  Transmission Date: 20120825
  Serious: No
  Sender: FDA-Public Use
  Company Number: US-PFIZER INC-US-WYE-H15507110

PATIENT
  Age: 62 Year
  Sex: Male

DRUGS (2)
  1. EFFEXOR XR [Suspect]
     Indication: MAJOR DEPRESSION
     Dosage: 75 MG, UNK
     Route: 065
     Dates: start: 20100506
  2. ASPIRIN [Suspect]
     Dosage: 81 MG, FREQUENCY UNKNOWN
     Route: 065

REACTIONS (3)
  - SKIN DISCOLOURATION [None]
  - RASH [None]
  - ECCHYMOSIS [None]
